FAERS Safety Report 14053559 (Version 1)
Quarter: 2017Q4

REPORT INFORMATION
  Report Type: Spontaneous
  Country: US (occurrence: US)
  Receive Date: 20171006
  Receipt Date: 20171006
  Transmission Date: 20180321
  Serious: No
  Sender: FDA-Public Use
  Company Number: US-JNJFOC-20170905304

PATIENT
  Age: 73 Year
  Sex: Female
  Weight: 57.61 kg

DRUGS (4)
  1. ZYRTEC [Suspect]
     Active Substance: CETIRIZINE HYDROCHLORIDE
     Route: 048
  2. BENADRYL TOPICAL [Concomitant]
     Indication: HYPERSENSITIVITY
     Route: 061
  3. BENADRYL TOPICAL [Concomitant]
     Indication: URTICARIA
     Route: 061
  4. ZYRTEC [Suspect]
     Active Substance: CETIRIZINE HYDROCHLORIDE
     Indication: HYPERSENSITIVITY
     Route: 048

REACTIONS (3)
  - Drug administration error [Unknown]
  - Off label use [Unknown]
  - Product use in unapproved indication [Unknown]
